FAERS Safety Report 5823527-4 (Version None)
Quarter: 2008Q3

REPORT INFORMATION
  Report Type: 
  Country: None (occurrence: None)
  Receive Date: 20080725
  Receipt Date: 20080718
  Transmission Date: 20090109
  Serious: Yes (Death)
  Sender: FDA-Public Use
  Company Number: JP-PFIZER INC-2008047785

PATIENT
  Sex: Female
  Weight: 70 kg

DRUGS (12)
  1. AZULFIDINE EN-TABS [Suspect]
     Indication: RHEUMATOID ARTHRITIS
     Route: 048
     Dates: start: 20080409, end: 20080415
  2. PONSTEL [Suspect]
     Indication: UPPER RESPIRATORY TRACT INFLAMMATION
     Route: 048
     Dates: start: 20080329, end: 20080415
  3. HYPEN [Suspect]
     Indication: RHEUMATOID ARTHRITIS
     Route: 048
     Dates: start: 20071120, end: 20080415
  4. MUCOSTA [Suspect]
     Indication: GASTRITIS
     Route: 048
  5. LEVOFLOXACIN [Suspect]
     Indication: UPPER RESPIRATORY TRACT INFLAMMATION
     Route: 048
     Dates: start: 20080329, end: 20080415
  6. FAMOTIDINE [Suspect]
     Indication: GASTRITIS
     Route: 048
     Dates: start: 20080329, end: 20080415
  7. CELESTAMINE TAB [Suspect]
     Indication: UPPER RESPIRATORY TRACT INFLAMMATION
     Route: 048
     Dates: start: 20080329, end: 20080415
  8. ROCEPHIN [Concomitant]
     Route: 042
  9. SOLU-MEDROL [Concomitant]
     Route: 042
     Dates: start: 20080416, end: 20080418
  10. PAZUCROSS [Concomitant]
     Route: 042
     Dates: start: 20080416, end: 20080417
  11. SOLU-CORTEF [Concomitant]
  12. MELBIN [Concomitant]
     Route: 048

REACTIONS (1)
  - TOXIC EPIDERMAL NECROLYSIS [None]
